FAERS Safety Report 15563793 (Version 1)
Quarter: 2018Q4

REPORT INFORMATION
  Report Type: Spontaneous
  Country: IE (occurrence: IE)
  Receive Date: 20181029
  Receipt Date: 20181029
  Transmission Date: 20190205
  Serious: Yes (Hospitalization)
  Sender: FDA-Public Use
  Company Number: IE-BAXTER-2018BAX026202

PATIENT
  Sex: Female

DRUGS (29)
  1. WATER FOR INJECTION [Suspect]
     Active Substance: WATER
     Indication: PARENTERAL NUTRITION
     Dosage: (WATER FOR TPN FORMULATIONS) WITH CLINOLEIC 20%
     Route: 065
  2. POTASSIUM CHLORIDE. [Suspect]
     Active Substance: POTASSIUM CHLORIDE
     Indication: PARENTERAL NUTRITION
     Dosage: WITH CLINOLEIC 20% (BAXTER UNLICENSED SPECIAL)
     Route: 065
  3. MAGNESIUM SULPHATE [Suspect]
     Active Substance: MAGNESIUM SULFATE
     Indication: PARENTERAL NUTRITION
     Dosage: WITH CLINOLEIC 20% (BAXTER UNLICENSED SPECIAL)
     Route: 065
  4. IRON CHLORIDE [Suspect]
     Active Substance: FERRIC CHLORIDE
     Indication: PARENTERAL NUTRITION
     Dosage: WITH CLINOLEIC 20%
     Route: 065
  5. SYNTHAMIN [Suspect]
     Active Substance: AMINO ACIDS
     Indication: PARENTERAL NUTRITION
     Dosage: WITH CLINOLEIC 20%
     Route: 065
  6. GLUCOSE 50% W/V CONCENTRATE FOR SOLUTION FOR INFUSION [Suspect]
     Active Substance: DEXTROSE
     Indication: PARENTERAL NUTRITION
     Dosage: WITH CLINOLEIC 20%
     Route: 065
  7. GLUCOSE 50% W/V CONCENTRATE FOR SOLUTION FOR INFUSION [Suspect]
     Active Substance: DEXTROSE
     Dosage: WITHOUT CLINOLEIC 20%
     Route: 065
  8. WATER FOR INJECTION [Suspect]
     Active Substance: WATER
     Dosage: (WATER FOR INJECTIONS PH EUR) WITH CLINOLEIC 20%
     Route: 065
  9. MAGNESIUM SULPHATE [Suspect]
     Active Substance: MAGNESIUM SULFATE
     Dosage: WITHOUT CLINOLEIC ACID
     Route: 065
  10. COPPER SULPHATE [Suspect]
     Active Substance: CUPRIC SULFATE ANHYDROUS
     Indication: PARENTERAL NUTRITION
     Dosage: WITH CLINOLEIC 20%
     Route: 065
  11. CERNEVIT [Suspect]
     Active Substance: VITAMINS
     Indication: PARENTERAL NUTRITION
     Dosage: WITH CLINOLEIC 20%
     Route: 065
  12. IRON CHLORIDE [Suspect]
     Active Substance: FERRIC CHLORIDE
     Dosage: WITHOUT CLINOLEIC 20%
     Route: 065
  13. CERNEVIT [Suspect]
     Active Substance: VITAMINS
     Dosage: WITHOUT CLINOLEIC 20%
     Route: 065
  14. ZINC SULFATE [Suspect]
     Active Substance: ZINC SULFATE\ZINC SULFATE ANHYDROUS
     Dosage: WITHOUT CLINOLEIC 20%
     Route: 065
  15. SELENIUM [Suspect]
     Active Substance: SELENIUM
     Indication: PARENTERAL NUTRITION
     Dosage: WITH CLINOLEIC 20%
     Route: 065
  16. CALCIUM CHLORIDE. [Suspect]
     Active Substance: CALCIUM CHLORIDE
     Indication: PARENTERAL NUTRITION
     Dosage: STRENGTH: 1 MMOL/ML, WITH CLINOLEIC 20%; (BAXTER UNLICENSED SPECIAL)
     Route: 065
  17. COPPER SULPHATE [Suspect]
     Active Substance: CUPRIC SULFATE ANHYDROUS
     Dosage: WITHOUT CLINOLEIC 20%
     Route: 065
  18. CLINOLEIC 20% [Suspect]
     Active Substance: OLIVE OIL\SOYBEAN OIL
     Indication: PARENTERAL NUTRITION
     Route: 065
  19. WATER FOR INJECTION [Suspect]
     Active Substance: WATER
     Dosage: (WATER FOR TPN FORMULATIONS) WITHOUT CLINOLEIC 20%
     Route: 065
  20. WATER FOR INJECTION [Suspect]
     Active Substance: WATER
     Dosage: (WATER FOR INJECTIONS PH EUR) WITHOUT CLINOLEIC 20%
     Route: 065
  21. SODIUM GLYCEROPHOSPHATE [Suspect]
     Active Substance: SODIUM GLYCEROPHOSPHATE
     Indication: PARENTERAL NUTRITION
     Dosage: WITH CLINOLEIC 20% (BAXTER UNLICENSED SPECIAL)
     Route: 065
  22. SELENIUM [Suspect]
     Active Substance: SELENIUM
     Dosage: WITHOUT CLINOLEIC 20%
     Route: 065
  23. CALCIUM CHLORIDE. [Suspect]
     Active Substance: CALCIUM CHLORIDE
     Dosage: STRENGTH: 1 MMOL/ML, WITHOUT CLINOLEIC 20%; (BAXTER UNLICENSED SPECIAL)
     Route: 065
  24. SODIUM GLYCEROPHOSPHATE [Suspect]
     Active Substance: SODIUM GLYCEROPHOSPHATE
     Dosage: WITHOUT CLINOLEIC 20% (BAXTER UNLICENSED SPECIAL)
     Route: 065
  25. SYNTHAMIN [Suspect]
     Active Substance: AMINO ACIDS
     Dosage: WITHOUT CLINOLEIC 20%
     Route: 065
  26. SODIUM CHLORIDE. [Suspect]
     Active Substance: SODIUM CHLORIDE
     Indication: PARENTERAL NUTRITION
     Dosage: WITH CLINOLEIC 20% (BAXTER UNLICENSED SPECIAL)
     Route: 065
  27. SODIUM CHLORIDE. [Suspect]
     Active Substance: SODIUM CHLORIDE
     Dosage: WITHOUT CLINOLEIC 20% (BAXTER UNLICENSED SPECIAL)
     Route: 065
  28. POTASSIUM CHLORIDE. [Suspect]
     Active Substance: POTASSIUM CHLORIDE
     Dosage: WITHOUT CLINOLEIC 20% (BAXTER UNLICENSED SPECIAL)
     Route: 065
  29. ZINC SULFATE [Suspect]
     Active Substance: ZINC SULFATE\ZINC SULFATE ANHYDROUS
     Indication: PARENTERAL NUTRITION
     Dosage: WITH CLINOLEIC 20%
     Route: 065

REACTIONS (1)
  - Thrombosis [Unknown]
